FAERS Safety Report 6765275-2 (Version None)
Quarter: 2010Q2

REPORT INFORMATION
  Report Type: 
  Country: None (occurrence: None)
  Receive Date: 20100611
  Receipt Date: 20100531
  Transmission Date: 20101027
  Serious: Yes (Hospitalization)
  Sender: FDA-Public Use
  Company Number: DE-JNJFOC-20100600462

PATIENT
  Age: 61 Year
  Sex: Female
  Weight: 95 kg

DRUGS (12)
  1. GOLIMUMAB [Suspect]
     Indication: RHEUMATOID ARTHRITIS
     Route: 058
  2. CANDESARTAN CILEXETIL [Suspect]
     Indication: HYPERTENSION
     Route: 048
  3. BISOPROLOL [Suspect]
     Indication: HYPERTENSION
     Route: 048
  4. SPIROLACTON [Suspect]
     Indication: HYPERTENSION
  5. ACTRAPID [Concomitant]
     Indication: DIABETES MELLITUS
     Route: 058
  6. PROTAPHANE [Concomitant]
     Indication: DIABETES MELLITUS
     Route: 058
  7. ALLOPURINOL [Concomitant]
     Indication: HYPERURICAEMIA
  8. TOVIAZ [Concomitant]
     Indication: INCONTINENCE
     Route: 048
  9. METEX [Concomitant]
     Indication: RHEUMATOID ARTHRITIS
     Route: 058
  10. PREDNISOLONE [Concomitant]
     Indication: RHEUMATOID ARTHRITIS
     Route: 048
  11. FOLIC ACID [Concomitant]
     Indication: FOLATE DEFICIENCY
     Route: 048
  12. CALCIUM AND VITAMIN D [Concomitant]
     Indication: OSTEOPOROSIS PROPHYLAXIS
     Route: 048

REACTIONS (1)
  - CIRCULATORY COLLAPSE [None]
